APPROVED DRUG PRODUCT: VENTAVIS
Active Ingredient: ILOPROST
Strength: 20MCG/ML (20MCG/ML) **Federal Register determination that product was not discontinued or withdrawn for safety or effectiveness reasons**
Dosage Form/Route: SOLUTION;INHALATION
Application: N021779 | Product #003
Applicant: ACTELION PHARMACEUTICALS US INC
Approved: Aug 7, 2009 | RLD: Yes | RS: No | Type: DISCN